FAERS Safety Report 25750429 (Version 1)
Quarter: 2025Q3

REPORT INFORMATION
  Report Type: Spontaneous
  Country: US (occurrence: US)
  Receive Date: 20250902
  Receipt Date: 20250902
  Transmission Date: 20251020
  Serious: No
  Sender: SANOFI AVENTIS
  Company Number: US-SA-2025SA261102

PATIENT
  Age: 20 Year
  Sex: Female

DRUGS (9)
  1. DUPIXENT [Suspect]
     Active Substance: DUPILUMAB
     Indication: Dermatitis allergic
     Route: 058
     Dates: start: 20230531
  2. CEPHALEXIN [Concomitant]
     Active Substance: CEPHALEXIN
  3. COENZYME Q10 [Concomitant]
     Active Substance: DIETARY SUPPLEMENT\UBIDECARENONE
  4. Digestive advantage probiotic plus fiber [Concomitant]
  5. IBUPROFEN [Concomitant]
     Active Substance: IBUPROFEN
  6. MAGNESIUM MALATE [Concomitant]
     Active Substance: MAGNESIUM MALATE
  7. TACROLIMUS [Concomitant]
     Active Substance: TACROLIMUS
  8. VITAMINS [Concomitant]
     Active Substance: VITAMINS
  9. BENADRYL ALLERGY [Concomitant]
     Active Substance: DIPHENHYDRAMINE HYDROCHLORIDE

REACTIONS (2)
  - Rebound eczema [Unknown]
  - Product dose omission issue [Unknown]

NARRATIVE: CASE EVENT DATE: 20250828
